FAERS Safety Report 4679663-1 (Version None)
Quarter: 2005Q2

REPORT INFORMATION
  Report Type: 
  Country: None (occurrence: None)
  Receive Date: 20050602
  Receipt Date: 20050525
  Transmission Date: 20051028
  Serious: Yes (Death)
  Sender: FDA-Public Use
  Company Number: DE-JNJFOC-20050503542

PATIENT
  Age: 45 Year
  Sex: Male

DRUGS (13)
  1. RISPERDAL CONSTA [Suspect]
     Route: 030
  2. RISPERDAL CONSTA [Suspect]
     Route: 030
  3. RISPERDAL CONSTA [Suspect]
     Indication: DRUG USE FOR UNKNOWN INDICATION
     Route: 030
  4. RISPERDAL [Interacting]
     Indication: DRUG USE FOR UNKNOWN INDICATION
     Route: 049
  5. NEUROCIL [Interacting]
     Indication: PSYCHOMOTOR AGITATION
     Route: 049
  6. TAVOR [Interacting]
     Indication: PSYCHOMOTOR AGITATION
     Route: 049
  7. CONCOR [Interacting]
     Indication: DRUG USE FOR UNKNOWN INDICATION
     Route: 049
  8. VESDIL [Interacting]
     Indication: DRUG USE FOR UNKNOWN INDICATION
     Route: 049
  9. NEUROTRAT [Concomitant]
     Route: 065
  10. NEUROTRAT [Concomitant]
     Route: 065
  11. NEUROTRAT [Concomitant]
     Route: 065
  12. NEUROTRAT [Concomitant]
     Dosage: THIAMINE NITRATE 100MG; PYRIDOXINE HCL 100MG
     Route: 065
  13. AKINETON [Concomitant]
     Route: 065

REACTIONS (3)
  - CARDIO-RESPIRATORY ARREST [None]
  - DRUG INTERACTION [None]
  - PSYCHOMOTOR AGITATION [None]
